FAERS Safety Report 24384334 (Version 1)
Quarter: 2024Q4

REPORT INFORMATION
  Report Type: Spontaneous
  Country: BG (occurrence: BG)
  Receive Date: 20241001
  Receipt Date: 20241001
  Transmission Date: 20250115
  Serious: Yes (Other)
  Sender: NOVARTIS
  Company Number: BG-002147023-NVSC2024BG192728

PATIENT
  Age: 71 Year
  Sex: Female

DRUGS (6)
  1. KISQALI [Suspect]
     Active Substance: RIBOCICLIB
     Indication: Breast cancer metastatic
     Dosage: 600 MG
     Route: 048
     Dates: start: 20201215, end: 20210112
  2. KISQALI [Suspect]
     Active Substance: RIBOCICLIB
     Dosage: 400 MG
     Route: 048
     Dates: start: 20210119, end: 20210202
  3. KISQALI [Suspect]
     Active Substance: RIBOCICLIB
     Dosage: 200 MG
     Route: 048
     Dates: start: 20210216, end: 20210223
  4. PALBOCICLIB [Suspect]
     Active Substance: PALBOCICLIB
     Indication: Product used for unknown indication
     Dosage: 125 MG
     Route: 065
     Dates: start: 20210406
  5. PALBOCICLIB [Suspect]
     Active Substance: PALBOCICLIB
     Dosage: 100 MG, QD
     Route: 065
  6. EXEMESTANE [Suspect]
     Active Substance: EXEMESTANE
     Indication: Product used for unknown indication
     Dosage: UNK
     Route: 065

REACTIONS (2)
  - Cardiotoxicity [Recovered/Resolved]
  - Electrocardiogram QT prolonged [Recovered/Resolved]

NARRATIVE: CASE EVENT DATE: 20201229
